FAERS Safety Report 21602877 (Version 1)
Quarter: 2022Q4

REPORT INFORMATION
  Report Type: Report from Study
  Country: US (occurrence: US)
  Receive Date: 20221116
  Receipt Date: 20221116
  Transmission Date: 20230113
  Serious: Yes (Hospitalization)
  Sender: FDA-Public Use
  Company Number: US-BRISTOL-MYERS SQUIBB COMPANY-2022-135223

PATIENT
  Age: 80 Year
  Sex: Male
  Weight: 82.55 kg

DRUGS (3)
  1. REVLIMID [Suspect]
     Active Substance: LENALIDOMIDE
     Indication: Plasma cell myeloma
     Route: 065
     Dates: start: 20220309
  2. XGEVA [Concomitant]
     Active Substance: DENOSUMAB
  3. VELCADE [Concomitant]
     Active Substance: BORTEZOMIB

REACTIONS (3)
  - COVID-19 [Unknown]
  - Weight decreased [Unknown]
  - Off label use [Unknown]
